FAERS Safety Report 25771205 (Version 1)
Quarter: 2025Q3

REPORT INFORMATION
  Report Type: Spontaneous
  Country: US (occurrence: US)
  Receive Date: 20250908
  Receipt Date: 20250908
  Transmission Date: 20251021
  Serious: No
  Sender: DOMPE FARMACEUTICI
  Company Number: US-FARMAPROD-202504-1092

PATIENT
  Sex: Female

DRUGS (13)
  1. OXERVATE [Suspect]
     Active Substance: CENEGERMIN-BKBJ
     Indication: Neurotrophic keratopathy
     Route: 047
     Dates: start: 20250304
  2. OXERVATE [Suspect]
     Active Substance: CENEGERMIN-BKBJ
  3. CEQUA [Concomitant]
     Active Substance: CYCLOSPORINE
  4. LEUCOVORIN CALCIUM [Concomitant]
     Active Substance: LEUCOVORIN CALCIUM
  5. METHOTREXATE [Concomitant]
     Active Substance: METHOTREXATE
  6. EZETIMIBE [Concomitant]
     Active Substance: EZETIMIBE
  7. HYDROXYCHLOROQUINE SULFATE [Concomitant]
     Active Substance: HYDROXYCHLOROQUINE SULFATE
  8. OMEPRAZOLE [Concomitant]
     Active Substance: OMEPRAZOLE
  9. WARFARIN SODIUM [Concomitant]
     Active Substance: WARFARIN SODIUM
  10. PRAVASTATIN SODIUM [Concomitant]
     Active Substance: PRAVASTATIN SODIUM
  11. LISINOPRIL [Concomitant]
     Active Substance: LISINOPRIL
  12. HYDROCHLOROTHIAZIDE [Concomitant]
     Active Substance: HYDROCHLOROTHIAZIDE
  13. SOTALOL [Concomitant]
     Active Substance: SOTALOL

REACTIONS (2)
  - Eye pain [Unknown]
  - Dry eye [Unknown]
